FAERS Safety Report 8797232 (Version 1)
Quarter: 2012Q4

REPORT INFORMATION
  Report Type: 
  Country: US (occurrence: US)
  Receive Date: 20120920
  Receipt Date: 20120920
  Transmission Date: 20130627
  Serious: No
  Sender: FDA-Public Use
  Company Number: US-009507513-1209USA006375

PATIENT
  Sex: Female

DRUGS (1)
  1. JANUMET [Suspect]
     Indication: GLYCOSYLATED HAEMOGLOBIN INCREASED
     Dosage: UNK, bid
     Route: 048

REACTIONS (3)
  - Oropharyngeal pain [Recovering/Resolving]
  - Dry mouth [Recovering/Resolving]
  - Night sweats [Recovering/Resolving]
